FAERS Safety Report 13869374 (Version 3)
Quarter: 2017Q3

REPORT INFORMATION
  Report Type: Report from Study
  Country: CA (occurrence: CA)
  Receive Date: 20170815
  Receipt Date: 20170908
  Transmission Date: 20171127
  Serious: Yes (Other)
  Sender: FDA-Public Use
  Company Number: CA-TAKEDA-2017TUS016777

PATIENT
  Age: 42 Year
  Sex: Male

DRUGS (2)
  1. REMERON [Concomitant]
     Active Substance: MIRTAZAPINE
     Dosage: 30 MG, UNK
  2. VEDOLIZUMAB [Suspect]
     Active Substance: VEDOLIZUMAB
     Indication: CROHN^S DISEASE
     Dosage: 300 MG, UNK
     Route: 042
     Dates: start: 20160906

REACTIONS (6)
  - Blood pressure increased [Unknown]
  - Loss of consciousness [Unknown]
  - Hyperhidrosis [Unknown]
  - Feeling hot [Unknown]
  - Amnesia [Unknown]
  - Crohn^s disease [Not Recovered/Not Resolved]

NARRATIVE: CASE EVENT DATE: 20170803
